FAERS Safety Report 4740306-X (Version None)
Quarter: 2005Q3

REPORT INFORMATION
  Report Type: 
  Country: None (occurrence: None)
  Receive Date: 20050729
  Receipt Date: 20050407
  Transmission Date: 20060218
  Serious: No
  Sender: FDA-Public Use
  Company Number: RB-1458-2005

PATIENT
  Age: 26 Year
  Sex: Male
  Weight: 77.1115 kg

DRUGS (2)
  1. SUBOXONE [Suspect]
     Indication: DRUG DEPENDENCE
     Dosage: 8 MG BID SL
     Dates: start: 20050407, end: 20050407
  2. CLONAZEPAM [Concomitant]

REACTIONS (3)
  - CHEST PAIN [None]
  - HALLUCINATION [None]
  - PALPITATIONS [None]
